FAERS Safety Report 9742312 (Version 2)
Quarter: 2013Q4

REPORT INFORMATION
  Report Type: Spontaneous
  Country: ES (occurrence: ES)
  Receive Date: 20131210
  Receipt Date: 20131210
  Transmission Date: 20140711
  Serious: Yes (Other)
  Sender: FDA-Public Use
  Company Number: ES-SA-CAMP-1003036

PATIENT
  Sex: Female
  Weight: 77 kg

DRUGS (5)
  1. ALEMTUZUMAB [Suspect]
     Indication: MULTIPLE SCLEROSIS
     Dosage: 12 MG, UNK
     Route: 042
     Dates: start: 20120515, end: 20120519
  2. MEMANTINE [Concomitant]
     Indication: COGNITIVE DISORDER
     Dosage: 10 MG, QD
  3. PAROXETINE [Concomitant]
     Indication: DEPRESSION
     Dosage: 20 MG, QD
  4. BACLOFEN [Concomitant]
     Indication: MUSCLE SPASTICITY
     Dosage: 25 MG, QD
  5. CANNABIS [Concomitant]
     Indication: MUSCLE SPASTICITY
     Dosage: 1 INHALATION
     Route: 055

REACTIONS (2)
  - Breast cancer [Not Recovered/Not Resolved]
  - Off label use [Unknown]
